FAERS Safety Report 8807210 (Version 3)
Quarter: 2012Q4

REPORT INFORMATION
  Report Type: 
  Country: US (occurrence: US)
  Receive Date: 20120925
  Receipt Date: 20121113
  Transmission Date: 20130627
  Serious: Yes (Death, Hospitalization, Other)
  Sender: FDA-Public Use
  Company Number: US-CELGENEUS-163-21880-12082263

PATIENT
  Age: 83 None
  Sex: Male

DRUGS (1)
  1. REVLIMID [Suspect]
     Indication: MDS
     Dosage: 5 Milligram
     Route: 048
     Dates: start: 20120803, end: 20120817

REACTIONS (13)
  - Myelodysplastic syndrome [Fatal]
  - Platelet count decreased [Unknown]
  - Pyrexia [Unknown]
  - Cough [Unknown]
  - Fatigue [Unknown]
  - Asthenia [Unknown]
  - Myocardial infarction [Unknown]
  - Cardiac failure congestive [Unknown]
  - Pneumonia [Recovered/Resolved]
  - Drug ineffective [Unknown]
  - Diarrhoea [Unknown]
  - Abdominal pain [Unknown]
  - Decreased appetite [Unknown]
